FAERS Safety Report 10614683 (Version 2)
Quarter: 2015Q1

REPORT INFORMATION
  Report Type: Spontaneous
  Country: FR (occurrence: FR)
  Receive Date: 20141130
  Receipt Date: 20150218
  Transmission Date: 20150720
  Serious: Yes (Hospitalization)
  Sender: FDA-Public Use
  Company Number: FR-ROCHE-1498685

PATIENT
  Age: 65 Year
  Sex: Female

DRUGS (12)
  1. LASILIX [Concomitant]
     Active Substance: FUROSEMIDE
  2. TEMERIT [Concomitant]
     Active Substance: NEBIVOLOL
  3. ROACTEMRA [Suspect]
     Active Substance: TOCILIZUMAB
     Indication: RHEUMATOID ARTHRITIS
     Route: 042
     Dates: start: 20121203, end: 20141002
  4. METHOTREXATE [Concomitant]
     Active Substance: METHOTREXATE
     Route: 065
     Dates: end: 201401
  5. MICARDIS [Concomitant]
     Active Substance: TELMISARTAN
  6. DAFALGAN CODEINE [Concomitant]
     Active Substance: ACETAMINOPHEN\CODEINE PHOSPHATE
  7. METHOTREXATE [Concomitant]
     Active Substance: METHOTREXATE
     Indication: RHEUMATOID ARTHRITIS
     Route: 065
     Dates: start: 20121203, end: 201307
  8. MINI-SINTROM [Concomitant]
     Active Substance: ACENOCOUMAROL
  9. FLODIL (FRANCE) [Concomitant]
  10. UVEDOSE [Concomitant]
     Active Substance: CHOLECALCIFEROL
  11. ROACTEMRA [Suspect]
     Active Substance: TOCILIZUMAB
     Route: 065
     Dates: start: 201401
  12. AMAREL [Concomitant]
     Active Substance: GLIMEPIRIDE

REACTIONS (1)
  - Neuropathy peripheral [Not Recovered/Not Resolved]

NARRATIVE: CASE EVENT DATE: 201301
